FAERS Safety Report 21952533 (Version 1)
Quarter: 2023Q1

REPORT INFORMATION
  Report Type: Spontaneous
  Country: PL (occurrence: PL)
  Receive Date: 20230203
  Receipt Date: 20230203
  Transmission Date: 20230417
  Serious: Yes (Hospitalization, Other)
  Sender: FDA-Public Use
  Company Number: PL-ADVANZ PHARMA-202301000522

PATIENT
  Age: 39 Year
  Sex: Female
  Weight: 70 kg

DRUGS (2)
  1. OCALIVA [Suspect]
     Active Substance: OBETICHOLIC ACID
     Indication: Primary biliary cholangitis
     Dosage: 5 MG (FIRST PACKAGE)
     Route: 048
     Dates: start: 20221113, end: 20221116
  2. OCALIVA [Suspect]
     Active Substance: OBETICHOLIC ACID
     Dosage: 10 MG (FIRST PACKAGE)
     Route: 048
     Dates: start: 20221117, end: 20221219

REACTIONS (1)
  - Oesophageal varices haemorrhage [Recovered/Resolved]

NARRATIVE: CASE EVENT DATE: 20221219
